FAERS Safety Report 19430663 (Version 2)
Quarter: 2022Q2

REPORT INFORMATION
  Report Type: Spontaneous
  Country: US (occurrence: None)
  Receive Date: 20210618
  Receipt Date: 20220609
  Transmission Date: 20220721
  Serious: Yes (Other)
  Sender: FDA-Public Use
  Company Number: US-ROCHE-2771248

PATIENT
  Age: 61 Year
  Sex: Male
  Weight: 78.088 kg

DRUGS (9)
  1. ACTEMRA [Suspect]
     Active Substance: TOCILIZUMAB
     Indication: Giant cell arteritis
     Route: 058
     Dates: start: 20201223
  2. ACTEMRA [Suspect]
     Active Substance: TOCILIZUMAB
  3. ACTEMRA [Suspect]
     Active Substance: TOCILIZUMAB
     Dosage: ALTERNATING SITES- RIGHT AND LEFT THIGH EVERY WEEK
     Route: 058
     Dates: start: 20210101
  4. ACTEMRA [Suspect]
     Active Substance: TOCILIZUMAB
  5. ATORVASTATIN [Concomitant]
     Active Substance: ATORVASTATIN
     Dates: start: 20210101
  6. OMEGA 3 [Concomitant]
     Active Substance: CAPSAICIN
  7. PREDNISONE [Concomitant]
     Active Substance: PREDNISONE
     Indication: Giant cell arteritis
     Dates: start: 20190705, end: 20201120
  8. PREDNISONE [Concomitant]
     Active Substance: PREDNISONE
     Dates: start: 202011, end: 202101
  9. PREDNISONE [Concomitant]
     Active Substance: PREDNISONE
     Dates: start: 202101

REACTIONS (3)
  - Headache [Recovered/Resolved]
  - Gingival bleeding [Recovered/Resolved]
  - Off label use [Unknown]

NARRATIVE: CASE EVENT DATE: 20201223
